FAERS Safety Report 25870834 (Version 1)
Quarter: 2025Q4

REPORT INFORMATION
  Report Type: Spontaneous
  Country: US (occurrence: None)
  Receive Date: 20251001
  Receipt Date: 20251001
  Transmission Date: 20260118
  Serious: No
  Sender: FDA-CTU
  Company Number: None

PATIENT
  Age: 45 Year
  Sex: Female

DRUGS (1)
  1. DUPIXENT [Suspect]
     Active Substance: DUPILUMAB
     Indication: Dermatitis atopic
     Dosage: : 300MG/2ML EVERY OTHER WEEK UNDER SKIN??
     Route: 058
     Dates: start: 20250602

REACTIONS (2)
  - Eye pruritus [None]
  - Blepharitis [None]

NARRATIVE: CASE EVENT DATE: 20250609
